FAERS Safety Report 9363496 (Version 1)
Quarter: 2013Q2

REPORT INFORMATION
  Report Type: Spontaneous
  Country: CH (occurrence: CH)
  Receive Date: 20130624
  Receipt Date: 20130624
  Transmission Date: 20140414
  Serious: Yes (Hospitalization)
  Sender: FDA-Public Use
  Company Number: CH-ELI_LILLY_AND_COMPANY-CH201306004677

PATIENT
  Age: 89 Year
  Sex: Female

DRUGS (5)
  1. XERISTAR [Suspect]
     Dosage: 30 MG, QD
  2. OSIPINE [Interacting]
     Dosage: 10 MG, QD
  3. COUMADIN [Interacting]
     Dosage: 3.75 MG, QD
     Dates: end: 20130508
  4. LANSOPRAZOLE [Interacting]
     Dosage: 15 MG, QD
  5. MONOKET [Concomitant]
     Dosage: 20 MG, QD

REACTIONS (3)
  - Gastrointestinal haemorrhage [Recovered/Resolved]
  - International normalised ratio increased [Unknown]
  - Asthenia [Unknown]
